FAERS Safety Report 8766671 (Version 4)
Quarter: 2013Q3

REPORT INFORMATION
  Report Type: Report from Study
  Country: JP (occurrence: JP)
  Receive Date: 20120904
  Receipt Date: 20130717
  Transmission Date: 20140515
  Serious: Yes (Other)
  Sender: FDA-Public Use
  Company Number: JP-VERTEX PHARMACEUTICAL INC.-2012-020280

PATIENT
  Age: 66 Year
  Sex: Male

DRUGS (9)
  1. VX-950 (TELAPREVIR) [Suspect]
     Indication: CHRONIC HEPATITIS C
     Dosage: 1500 MG, QD
     Route: 048
     Dates: start: 20120703, end: 20120801
  2. REBETOL [Suspect]
     Indication: CHRONIC HEPATITIS C
     Dosage: 400 MG, QD
     Route: 048
     Dates: start: 20120703, end: 20120821
  3. REBETOL [Suspect]
     Dosage: 200 MG, QD
     Route: 048
     Dates: start: 20120822, end: 20130102
  4. PEGINTERFERON ALFA-2B [Concomitant]
     Dosage: 1.5 ?G/KG, QW
     Route: 058
     Dates: start: 20120703, end: 20121226
  5. TALION [Concomitant]
     Dosage: 20 MG, QD
     Route: 048
     Dates: start: 20120703, end: 20120904
  6. CRAVIT [Concomitant]
     Dosage: 500 MG, QD
     Route: 048
     Dates: start: 20121101, end: 20121102
  7. CALONAL [Concomitant]
     Dosage: 300 MG, QD
     Route: 048
     Dates: start: 20121101, end: 20121102
  8. GASTER D [Concomitant]
     Dosage: 40 MG, QD
     Route: 048
     Dates: start: 20121101, end: 20121102
  9. THIATON [Concomitant]
     Dosage: 20 MG, QD
     Route: 048
     Dates: start: 20121101, end: 20121102

REACTIONS (1)
  - Erythema [Recovered/Resolved]
